FAERS Safety Report 12340368 (Version 2)
Quarter: 2016Q2

REPORT INFORMATION
  Report Type: Spontaneous
  Country: US (occurrence: US)
  Receive Date: 20160506
  Receipt Date: 20160506
  Transmission Date: 20160815
  Serious: Yes (Death, Life-Threatening, Hospitalization)
  Sender: FDA-Public Use
  Company Number: US-CIPLA LTD.-2016US04524

PATIENT

DRUGS (2)
  1. AMLODIPINE [Suspect]
     Active Substance: AMLODIPINE BESYLATE
     Dosage: UNK, MORE THAN 100 TABLETS
     Route: 048
  2. CARVEDILOL. [Suspect]
     Active Substance: CARVEDILOL
     Dosage: UNK, MORE THAN 100 TABLETS
     Route: 048

REACTIONS (7)
  - Overdose [Fatal]
  - Acute respiratory distress syndrome [Fatal]
  - Mental status changes [Unknown]
  - Metabolic acidosis [Unknown]
  - Hypotension [Unknown]
  - Bradycardia [Unknown]
  - Acute kidney injury [Recovering/Resolving]
